FAERS Safety Report 12654622 (Version 2)
Quarter: 2016Q3

REPORT INFORMATION
  Report Type: Report from Study
  Country: US (occurrence: US)
  Receive Date: 20160816
  Receipt Date: 20160928
  Transmission Date: 20161109
  Serious: Yes (Other)
  Sender: FDA-Public Use
  Company Number: US-AMGEN-USASL2016105877

PATIENT
  Age: 77 Year
  Sex: Male

DRUGS (1)
  1. KYPROLIS [Suspect]
     Active Substance: CARFILZOMIB
     Indication: PLASMA CELL MYELOMA
     Dosage: 38 MG, 28 DAY CYCLE
     Route: 065

REACTIONS (6)
  - Gait disturbance [Unknown]
  - Pyrexia [Unknown]
  - Bone disorder [Unknown]
  - Fatigue [Unknown]
  - Gastrointestinal disorder [Unknown]
  - Peripheral swelling [Unknown]
